FAERS Safety Report 5986568-2 (Version None)
Quarter: 2008Q4

REPORT INFORMATION
  Report Type: 
  Country: None (occurrence: None)
  Receive Date: 20081209
  Receipt Date: 20081201
  Transmission Date: 20090506
  Serious: Yes (Hospitalization)
  Sender: FDA-Public Use
  Company Number: JP-ABBOTT-08P-087-0490476-00

PATIENT
  Sex: Female
  Weight: 68.5 kg

DRUGS (10)
  1. HUMIRA [Suspect]
     Indication: RHEUMATOID ARTHRITIS
     Route: 058
     Dates: start: 20081111, end: 20081111
  2. METHOTREXATE [Concomitant]
     Indication: RHEUMATOID ARTHRITIS
  3. PREDNISOLONE [Concomitant]
     Indication: RHEUMATOID ARTHRITIS
     Route: 048
  4. NABUMETONE [Concomitant]
     Indication: RHEUMATOID ARTHRITIS
  5. DICLOFENAC SODIUM [Concomitant]
     Indication: RHEUMATOID ARTHRITIS
  6. AMLODIPINE BESYLATE [Concomitant]
     Indication: HYPERTENSION
  7. VALSARTAN [Concomitant]
     Indication: HYPERTENSION
  8. MAGNESIUM OXIDE [Concomitant]
     Indication: CONSTIPATION
  9. SENNOSIDE A+B [Concomitant]
     Indication: CONSTIPATION
  10. FUROSEMIDE [Concomitant]
     Indication: HYPERTENSION

REACTIONS (4)
  - ARTHRITIS [None]
  - ASTHMA [None]
  - PYREXIA [None]
  - RASH [None]
